FAERS Safety Report 7791482-6 (Version None)
Quarter: 2011Q4

REPORT INFORMATION
  Report Type: 
  Country: None (occurrence: None)
  Receive Date: 20111003
  Receipt Date: 20110926
  Transmission Date: 20120403
  Serious: Yes (Other)
  Sender: FDA-Public Use
  Company Number: US-JNJFOC-20110813578

PATIENT
  Sex: Female
  Weight: 68.04 kg

DRUGS (2)
  1. STELARA [Suspect]
     Indication: PSORIASIS
     Route: 058
     Dates: start: 20110907
  2. STELARA [Suspect]
     Route: 058
     Dates: start: 20110803

REACTIONS (2)
  - GUTTATE PSORIASIS [None]
  - PSORIASIS [None]
